FAERS Safety Report 6896112-3 (Version None)
Quarter: 2010Q3

REPORT INFORMATION
  Report Type: 
  Country: None (occurrence: None)
  Receive Date: 20100802
  Receipt Date: 20100722
  Transmission Date: 20110219
  Serious: Yes (Other)
  Sender: FDA-Public Use
  Company Number: A0858969A

PATIENT
  Age: 72 Year
  Sex: Male

DRUGS (17)
  1. CARVEDILOL [Suspect]
     Indication: PRODUCT USED FOR UNKNOWN INDICATION
     Dosage: 25MG TWICE PER DAY
     Route: 048
  2. RANITIDINE [Suspect]
     Indication: PROPHYLAXIS
     Dosage: 50MG CYCLIC
     Route: 042
  3. ZOFRAN [Suspect]
     Dosage: 8MG CYCLIC
     Route: 042
  4. ASPIRIN [Suspect]
     Indication: PRODUCT USED FOR UNKNOWN INDICATION
     Dosage: 81MG PER DAY
     Route: 048
  5. CARBOPLATIN [Suspect]
     Indication: CHEMOTHERAPY
     Route: 042
     Dates: start: 20100414
  6. DETROL [Suspect]
     Indication: PRODUCT USED FOR UNKNOWN INDICATION
     Dosage: 4MG PER DAY
     Route: 048
  7. DEXAMETHASONE [Suspect]
     Dosage: 20MG CYCLIC
     Route: 042
  8. DIPHENHYDRAMINE [Suspect]
     Indication: PROPHYLAXIS
     Dosage: 50MG CYCLIC
     Route: 042
  9. FOSINOPRIL SODIUM [Suspect]
     Indication: PRODUCT USED FOR UNKNOWN INDICATION
     Dosage: 20MG TWICE PER DAY
     Route: 048
  10. HYDROCHLOROTHIAZIDE [Suspect]
     Indication: PRODUCT USED FOR UNKNOWN INDICATION
     Dosage: 12.5MG PER DAY
     Route: 048
  11. MEGACE [Suspect]
     Indication: APPETITE DISORDER
     Dosage: 40MGML FOUR TIMES PER DAY
     Route: 048
  12. PHENERGAN [Suspect]
     Indication: NAUSEA
     Dosage: 25MG AS REQUIRED
     Route: 048
  13. PLAVIX [Suspect]
     Indication: PRODUCT USED FOR UNKNOWN INDICATION
     Dosage: 75MG PER DAY
     Route: 048
  14. SIMVASTATIN [Suspect]
     Indication: PRODUCT USED FOR UNKNOWN INDICATION
     Dosage: 80MG AT NIGHT
     Route: 048
  15. TAXOL [Suspect]
     Indication: CHEMOTHERAPY
     Dosage: 200MGM2 CYCLIC
     Route: 042
     Dates: start: 20100414
  16. VITAMIN D [Suspect]
     Dosage: 50000UNIT CYCLIC
  17. OMEPRAZOLE [Suspect]
     Indication: PRODUCT USED FOR UNKNOWN INDICATION
     Dosage: 20U TWICE PER DAY
     Route: 048

REACTIONS (27)
  - ABASIA [None]
  - ASTHENIA [None]
  - ATELECTASIS [None]
  - BLOOD CHLORIDE DECREASED [None]
  - BLOOD GLUCOSE INCREASED [None]
  - BLOOD POTASSIUM DECREASED [None]
  - BLOOD UREA INCREASED [None]
  - DECREASED APPETITE [None]
  - DEHYDRATION [None]
  - DIARRHOEA [None]
  - EATING DISORDER [None]
  - FAILURE TO THRIVE [None]
  - HAEMATOCRIT [None]
  - HAEMOGLOBIN DECREASED [None]
  - HYPOCALCAEMIA [None]
  - HYPOMAGNESAEMIA [None]
  - HYPONATRAEMIA [None]
  - LISTLESS [None]
  - LUNG ADENOCARCINOMA [None]
  - MONOCYTE COUNT DECREASED [None]
  - NEUTROPENIA [None]
  - NEUTROPHIL COUNT DECREASED [None]
  - PNEUMONIA [None]
  - PROTHROMBIN TIME PROLONGED [None]
  - RED BLOOD CELL COUNT DECREASED [None]
  - TACHYCARDIA [None]
  - WHITE BLOOD CELL COUNT DECREASED [None]
